FAERS Safety Report 6920278-X (Version None)
Quarter: 2010Q3

REPORT INFORMATION
  Report Type: 
  Country: None (occurrence: None)
  Receive Date: 20100809
  Receipt Date: 20091116
  Transmission Date: 20110219
  Serious: Yes (Hospitalization, Disabling, Other)
  Sender: FDA-Public Use
  Company Number: 2009SP036873

PATIENT
  Age: 47 Year
  Sex: Female
  Weight: 68.0396 kg

DRUGS (9)
  1. NUVARING [Suspect]
     Indication: MENSTRUATION IRREGULAR
     Dates: start: 20070401, end: 20071014
  2. NUVARING [Suspect]
     Indication: OVARIAN CYST
     Dates: start: 20070401, end: 20071014
  3. IBUPROFEN (CON.) [Concomitant]
  4. LISINOPRIL (CON.) [Concomitant]
  5. Z-PAK (CON.) [Concomitant]
  6. ACIPHEX (CON.) [Concomitant]
  7. HYDROCODONE (CON.) [Concomitant]
  8. ANCEF (CON.) [Concomitant]
  9. PHENYLEPHRINE (CON.) [Concomitant]

REACTIONS (16)
  - ANEURYSM [None]
  - COMA [None]
  - DEEP VEIN THROMBOSIS [None]
  - EAR INFECTION [None]
  - HAEMANGIOMA OF LIVER [None]
  - HAEMORRHAGIC STROKE [None]
  - HEADACHE [None]
  - HYPERCOAGULATION [None]
  - IRON DEFICIENCY ANAEMIA [None]
  - LEUKOCYTOSIS [None]
  - PROTEIN S DEFICIENCY [None]
  - RESPIRATORY FAILURE [None]
  - SUPERIOR SAGITTAL SINUS THROMBOSIS [None]
  - SYNCOPE [None]
  - VENA CAVA THROMBOSIS [None]
  - VISUAL FIELD DEFECT [None]
